FAERS Safety Report 20756331 (Version 2)
Quarter: 2022Q3

REPORT INFORMATION
  Report Type: Report from Study
  Country: US (occurrence: US)
  Receive Date: 20220427
  Receipt Date: 20220722
  Transmission Date: 20221027
  Serious: No
  Sender: FDA-Public Use
  Company Number: US-NOVARTISTESTPH-NVSC2022US097444

PATIENT
  Age: 51 Year
  Sex: Female

DRUGS (3)
  1. COSENTYX [Suspect]
     Active Substance: SECUKINUMAB
     Indication: Ankylosing spondylitis
     Dosage: 300 MG, QW (FOR FIVE WEEKS) (1ST INJECTION)
     Route: 058
     Dates: start: 20220417
  2. COSENTYX [Suspect]
     Active Substance: SECUKINUMAB
     Dosage: 300 MG, QW (FOR FIVE WEEKS) (2ND INJECTION)
     Route: 058
     Dates: start: 20220424
  3. COSENTYX [Suspect]
     Active Substance: SECUKINUMAB
     Dosage: 300 MG, QMO (Q FOUR WEEKS)
     Route: 058

REACTIONS (4)
  - Injection site pain [Unknown]
  - Oropharyngeal pain [Unknown]
  - Upper-airway cough syndrome [Unknown]
  - Nasal congestion [Unknown]

NARRATIVE: CASE EVENT DATE: 20220417
